FAERS Safety Report 9786477 (Version 2)
Quarter: 2014Q1

REPORT INFORMATION
  Report Type: Spontaneous
  Country: CN (occurrence: None)
  Receive Date: 20131224
  Receipt Date: 20140106
  Transmission Date: 20141002
  Serious: Yes (Hospitalization)
  Sender: FDA-Public Use
  Company Number: 2013P1022197

PATIENT
  Age: 5 Year
  Sex: Female

DRUGS (1)
  1. ALBENDAZOLE [Suspect]
     Indication: HELMINTHIC INFECTION
     Route: 048
     Dates: start: 20131114, end: 20131114

REACTIONS (2)
  - Vomiting [None]
  - Diarrhoea [None]
